FAERS Safety Report 9314331 (Version 1)
Quarter: 2013Q2

REPORT INFORMATION
  Report Type: Report from Study
  Country: DE (occurrence: DE)
  Receive Date: 20130529
  Receipt Date: 20130529
  Transmission Date: 20140414
  Serious: Yes (Hospitalization)
  Sender: FDA-Public Use
  Company Number: DE-ROCHE-775594

PATIENT
  Age: 55 Year
  Sex: Male
  Weight: 84 kg

DRUGS (13)
  1. MYCOPHENOLATE MOFETIL [Suspect]
     Indication: PROPHYLAXIS AGAINST TRANSPLANT REJECTION
     Dosage: LAST DOSE PRIOR TO SAE 29/APR/2011
     Route: 048
  2. PREDNISOLON [Concomitant]
     Route: 065
  3. SULFAMETHOXAZOLE/TRIMETHOPRIM [Concomitant]
     Dosage: DOSE: 160/800 MG
     Route: 065
  4. ITRACONAZOL [Concomitant]
     Route: 065
  5. VALGANCICLOVIR [Concomitant]
     Route: 065
  6. TINZAPARIN [Concomitant]
     Dosage: DOSE:3500.0000
     Route: 065
  7. POTASSIUM CHLORIDE [Concomitant]
     Route: 065
  8. CALCIUM CARBONATE/CHOLECALCIFEROL [Concomitant]
     Dosage: DAILY DOSE: 12 G+ 800 IU
     Route: 065
  9. TORASEMIDE [Concomitant]
     Route: 065
  10. PANTOPRAZOL [Concomitant]
     Route: 065
  11. CEFUROXIM [Concomitant]
     Route: 065
     Dates: start: 20110418, end: 20110426
  12. CYCLOSPORIN [Concomitant]
  13. PRAVASTATIN [Concomitant]
     Route: 065
     Dates: start: 20110311

REACTIONS (1)
  - Graft dysfunction [Recovered/Resolved]
